FAERS Safety Report 12978409 (Version 2)
Quarter: 2017Q4

REPORT INFORMATION
  Report Type: Spontaneous
  Country: US (occurrence: US)
  Receive Date: 20161128
  Receipt Date: 20171129
  Transmission Date: 20180320
  Serious: No
  Sender: FDA-Public Use
  Company Number: US-PFIZER INC-2016542942

PATIENT
  Age: 72 Year
  Sex: Female

DRUGS (5)
  1. FLAGYL [Suspect]
     Active Substance: METRONIDAZOLE\METRONIDAZOLE HYDROCHLORIDE
     Dosage: UNK
  2. GENTAMYCIN [Suspect]
     Active Substance: GENTAMICIN
     Dosage: UNK
  3. CLINDAMYCIN PHOSPHATE. [Suspect]
     Active Substance: CLINDAMYCIN PHOSPHATE
     Dosage: UNK
  4. FENTANYL TRANSDERMAL SYSTEM [Suspect]
     Active Substance: FENTANYL
     Dosage: UNK
  5. CODEINE [Suspect]
     Active Substance: CODEINE
     Dosage: UNK

REACTIONS (3)
  - Drug hypersensitivity [Unknown]
  - Urticaria [Unknown]
  - Pruritus [Unknown]
